FAERS Safety Report 14749875 (Version 1)
Quarter: 2018Q2

REPORT INFORMATION
  Report Type: Report from Study
  Country: BR (occurrence: BR)
  Receive Date: 20180412
  Receipt Date: 20180412
  Transmission Date: 20180711
  Serious: Yes (Other)
  Sender: FDA-Public Use
  Company Number: BR-ROCHE-2100561

PATIENT
  Sex: Female
  Weight: 65 kg

DRUGS (5)
  1. PERJETA [Suspect]
     Active Substance: PERTUZUMAB
     Indication: HER-2 POSITIVE BREAST CANCER
     Dosage: FIRST LINE TREAMENT
     Route: 065
     Dates: start: 20160301, end: 20170301
  2. PERJETA [Suspect]
     Active Substance: PERTUZUMAB
     Route: 065
     Dates: start: 20160301, end: 20170301
  3. HERCEPTIN [Suspect]
     Active Substance: TRASTUZUMAB
     Indication: HER-2 POSITIVE BREAST CANCER
     Dosage: FIRST LINE TREATMENT
     Route: 065
     Dates: start: 20160301, end: 20170301
  4. HERCEPTIN [Suspect]
     Active Substance: TRASTUZUMAB
     Route: 065
     Dates: start: 20160301, end: 20170301
  5. TAXOL [Concomitant]
     Active Substance: PACLITAXEL
     Indication: HER-2 POSITIVE BREAST CANCER
     Dosage: FIRST LINE
     Route: 065
     Dates: start: 20160301, end: 20170301

REACTIONS (2)
  - HER-2 positive breast cancer [Unknown]
  - Drug ineffective [Unknown]
